FAERS Safety Report 7538878-5 (Version None)
Quarter: 2011Q2

REPORT INFORMATION
  Report Type: 
  Country: None (occurrence: None)
  Receive Date: 20110524
  Receipt Date: 20110405
  Transmission Date: 20111010
  Serious: No
  Sender: FDA-Public Use
  Company Number: 030647

PATIENT
  Sex: Female

DRUGS (1)
  1. CIMZIA [Suspect]
     Dosage: (400 MG 1X/4 WEEKS SUBCUTANEOUS)
     Route: 058

REACTIONS (1)
  - CELLULITIS [None]
